FAERS Safety Report 13807694 (Version 1)
Quarter: 2017Q3

REPORT INFORMATION
  Report Type: Spontaneous
  Country: ID (occurrence: ID)
  Receive Date: 20170728
  Receipt Date: 20170728
  Transmission Date: 20171127
  Serious: Yes (Hospitalization)
  Sender: FDA-Public Use
  Company Number: ID-VISTAPHARM, INC.-VER201707-000253

PATIENT
  Age: 72 Year
  Sex: Male

DRUGS (9)
  1. METOCLOPRAMIDE. [Suspect]
     Active Substance: METOCLOPRAMIDE
  2. METOCLOPRAMIDE. [Suspect]
     Active Substance: METOCLOPRAMIDE
     Route: 040
  3. INSULIN [Concomitant]
     Active Substance: INSULIN NOS
  4. CEFTRIAXONE. [Concomitant]
     Active Substance: CEFTRIAXONE
  5. LOPERAMIDE [Concomitant]
     Active Substance: LOPERAMIDE
  6. LANSOPRAZOLE. [Concomitant]
     Active Substance: LANSOPRAZOLE
  7. LOPERAMIDE [Concomitant]
     Active Substance: LOPERAMIDE
     Route: 042
  8. DIGOXIN. [Concomitant]
     Active Substance: DIGOXIN
     Route: 042
  9. BISOPROLOL [Concomitant]
     Active Substance: BISOPROLOL

REACTIONS (1)
  - Torsade de pointes [Unknown]
